FAERS Safety Report 19167206 (Version 2)
Quarter: 2021Q3

REPORT INFORMATION
  Report Type: Report from Study
  Country: None (occurrence: CO)
  Receive Date: 20210422
  Receipt Date: 20210930
  Transmission Date: 20211014
  Serious: Yes (Other)
  Sender: FDA-Public Use
  Company Number: CO-ABBVIE-21K-036-3871062-00

PATIENT
  Age: 78 Year
  Sex: Female
  Weight: 53 kg

DRUGS (2)
  1. IMBRUVICA [Suspect]
     Active Substance: IBRUTINIB
     Indication: CHRONIC LYMPHOCYTIC LEUKAEMIA
     Dosage: 140 MG CAPSULES
     Route: 048
     Dates: start: 20190830
  2. COVID?19 VACCINE NOS. [Suspect]
     Active Substance: COVID-19 VACCINE NOS
     Indication: PROPHYLAXIS
     Route: 065
     Dates: start: 20210326

REACTIONS (2)
  - Facial paralysis [Not Recovered/Not Resolved]
  - Vertigo [Not Recovered/Not Resolved]

NARRATIVE: CASE EVENT DATE: 202103
